FAERS Safety Report 10313937 (Version 1)
Quarter: 2014Q3

REPORT INFORMATION
  Report Type: Spontaneous
  Country: US (occurrence: None)
  Receive Date: 20140716
  Receipt Date: 20140716
  Transmission Date: 20150326
  Serious: Yes (Other)
  Sender: FDA-Public Use
  Company Number: AUR-APL-2014-07380

PATIENT
  Age: 46 Year
  Sex: Female
  Weight: 74.4 kg

DRUGS (8)
  1. METOPROLOL 25MG (METOPROLOL) UNKNOWN, 25MG [Suspect]
     Active Substance: METOPROLOL
     Indication: PALPITATIONS
     Route: 048
     Dates: start: 2014, end: 201405
  2. SINGULAIR (MONTELUKAST SODIUM) [Concomitant]
  3. NORCO (HYDROCODONE BITARTRATE, PARACETAMOL) [Concomitant]
  4. NEXIUM [Suspect]
     Active Substance: ESOMEPRAZOLE MAGNESIUM
     Indication: BARRETT^S OESOPHAGUS
     Route: 048
     Dates: start: 2001, end: 2010
  5. PROZAC [Concomitant]
     Active Substance: FLUOXETINE HYDROCHLORIDE
  6. XANAX [Concomitant]
     Active Substance: ALPRAZOLAM
  7. METOPROLOL 25MG (METOPROLOL) UNKNOWN, 25MG [Suspect]
     Active Substance: METOPROLOL
     Indication: HEART RATE ABNORMAL
     Route: 048
     Dates: start: 2014, end: 201405
  8. OMEPRAZOLE (OMEPRAZOLE) [Suspect]
     Active Substance: OMEPRAZOLE
     Indication: BARRETT^S OESOPHAGUS
     Route: 048
     Dates: start: 201406

REACTIONS (12)
  - Drug ineffective [None]
  - Heart rate decreased [None]
  - Barrett^s oesophagus [None]
  - Food allergy [None]
  - Condition aggravated [None]
  - Heart injury [None]
  - Heart rate irregular [None]
  - Off label use [None]
  - Asthma [None]
  - Abdominal discomfort [None]
  - Irritable bowel syndrome [None]
  - Hypotension [None]

NARRATIVE: CASE EVENT DATE: 201403
